FAERS Safety Report 9311834 (Version 1)
Quarter: 2013Q1

REPORT INFORMATION
  Report Type: Spontaneous
  Country: US (occurrence: None)
  Receive Date: 20130212
  Receipt Date: 20130212
  Transmission Date: 20140127
  Serious: Yes (Hospitalization)
  Sender: FDA-Public Use
  Company Number: 12US008174

PATIENT
  Age: 51 Year
  Sex: Female
  Weight: 48.1 kg

DRUGS (4)
  1. MOMETASONE FUROATE OR NASONEX OR VEHICLE (CODE NOT BROKEN) NASAN SPRAY [Suspect]
     Indication: RHINITIS SEASONAL
     Route: 045
     Dates: start: 20120831, end: 20120913
  2. LISINOPRIL (LISINOPRIL) [Concomitant]
  3. MELOXICAM (MELOXICAM) [Concomitant]
  4. XOPENEX HFA (LEVOSALBUTAMOL TARTRATE) [Concomitant]

REACTIONS (7)
  - Chest pain [None]
  - Costochondritis [None]
  - Arthritis [None]
  - Muscle spasms [None]
  - Dyspnoea [None]
  - Nausea [None]
  - Asthenia [None]
